FAERS Safety Report 12819099 (Version 3)
Quarter: 2016Q4

REPORT INFORMATION
  Report Type: Spontaneous
  Country: US (occurrence: US)
  Receive Date: 20161006
  Receipt Date: 20161019
  Transmission Date: 20170207
  Serious: No
  Sender: FDA-Public Use
  Company Number: US-HORIZON-RAV-0198-2016

PATIENT
  Age: 25 Year
  Sex: Male

DRUGS (3)
  1. RAVICTI [Suspect]
     Active Substance: GLYCEROL PHENYLBUTYRATE
     Indication: ORNITHINE TRANSCARBAMOYLASE DEFICIENCY
     Dosage: 3.3 ML TID
     Dates: start: 20160920
  2. LACTULOSE. [Concomitant]
     Active Substance: LACTULOSE
  3. CITRULLINE [Concomitant]
     Active Substance: CITRULLINE
     Dosage: BID

REACTIONS (2)
  - Fatigue [Not Recovered/Not Resolved]
  - Disturbance in attention [Not Recovered/Not Resolved]
